FAERS Safety Report 17619159 (Version 1)
Quarter: 2020Q2

REPORT INFORMATION
  Report Type: Report from Study
  Country: US (occurrence: US)
  Receive Date: 20200402
  Receipt Date: 20200402
  Transmission Date: 20200713
  Serious: Yes (Hospitalization, Other)
  Sender: FDA-Public Use
  Company Number: US-GILEAD-2020-0457617

PATIENT
  Age: 64 Year
  Sex: Female

DRUGS (2)
  1. AZTREONAM LYSINE [Suspect]
     Active Substance: AZTREONAM LYSINE
     Indication: CYSTIC FIBROSIS
     Dosage: 75 MG, TID, X28 DAYS ON, 28 DAYS OFF
     Route: 055
     Dates: start: 201805
  2. MEROPENEM. [Suspect]
     Active Substance: MEROPENEM
     Indication: PRODUCT USED FOR UNKNOWN INDICATION
     Route: 055

REACTIONS (7)
  - Bronchitis [Recovered/Resolved with Sequelae]
  - Pruritus [Unknown]
  - Drug hypersensitivity [Recovered/Resolved with Sequelae]
  - Headache [Recovered/Resolved with Sequelae]
  - Dyspnoea [Unknown]
  - Angina pectoris [Unknown]
  - Bowel movement irregularity [Unknown]
